FAERS Safety Report 18131138 (Version 1)
Quarter: 2020Q3

REPORT INFORMATION
  Report Type: Other
  Country: CN (occurrence: CN)
  Receive Date: 20200810
  Receipt Date: 20200810
  Transmission Date: 20201103
  Serious: Yes (Hospitalization)
  Sender: FDA-Public Use
  Company Number: CN-TOPROL ACQUISITION LLC-2020-TOP-000314

PATIENT
  Age: 47 Year
  Sex: Male
  Weight: 77 kg

DRUGS (3)
  1. BRILINTA [Suspect]
     Active Substance: TICAGRELOR
     Indication: ACUTE MYOCARDIAL INFARCTION
     Dosage: 90 MG, BID
     Route: 048
     Dates: start: 20200424, end: 20200608
  2. METOPROLOL SUCCINATE. [Suspect]
     Active Substance: METOPROLOL SUCCINATE
     Indication: CARDIOMYOPATHY
     Dosage: 23.75 MG, QD
     Route: 048
     Dates: start: 20200424, end: 20200427
  3. METOPROLOL SUCCINATE. [Suspect]
     Active Substance: METOPROLOL SUCCINATE
     Indication: ARTERIOSCLEROSIS CORONARY ARTERY

REACTIONS (4)
  - Electrocardiogram RR interval prolonged [Recovered/Resolved]
  - Bradycardia [Unknown]
  - Ventricular extrasystoles [Unknown]
  - Sinus arrest [Recovered/Resolved]

NARRATIVE: CASE EVENT DATE: 20200427
